FAERS Safety Report 4330823-9 (Version None)
Quarter: 2004Q1

REPORT INFORMATION
  Report Type: 
  Country: None (occurrence: None)
  Receive Date: 20040331
  Receipt Date: 20040315
  Transmission Date: 20041129
  Serious: Yes (Hospitalization)
  Sender: FDA-Public Use
  Company Number: USA030844138

PATIENT
  Age: 76 Year
  Sex: Female
  Weight: 83 kg

DRUGS (8)
  1. FORTEO [Suspect]
     Indication: OSTEOPOROSIS
     Dosage: 20 UG/ 1 DAY
     Dates: start: 20030101
  2. METAMUCIL-2 [Concomitant]
  3. PRILOSEX (OMEPRAZOLE) [Concomitant]
  4. CLARITIN [Concomitant]
  5. SYNTHROID ILEVOTHYROXINE SODIUM) [Concomitant]
  6. KCL (POTASSIUM CHORIDE) [Concomitant]
  7. CALCIUM WITH VITAMIN D [Concomitant]
  8. ETANERCEPT [Concomitant]

REACTIONS (4)
  - CONDITION AGGRAVATED [None]
  - CONSTIPATION [None]
  - POLYP [None]
  - POST PROCEDURAL HAEMORRHAGE [None]
